FAERS Safety Report 21979536 (Version 1)
Quarter: 2023Q1

REPORT INFORMATION
  Report Type: Spontaneous
  Country: US (occurrence: None)
  Receive Date: 20230209
  Receipt Date: 20230209
  Transmission Date: 20230417
  Serious: Yes (Death)
  Sender: FDA-Public Use
  Company Number: None

PATIENT
  Age: 57 Year
  Sex: Male
  Weight: 90 kg

DRUGS (1)
  1. VENLAFAXINE HCL [Suspect]
     Active Substance: VENLAFAXINE HYDROCHLORIDE
     Indication: Anxiety
     Dosage: 1 TABLET  DAILY ORAL
     Route: 048
     Dates: end: 20221231

REACTIONS (5)
  - Completed suicide [None]
  - Anger [None]
  - Sleep terror [None]
  - Irritability [None]
  - Personality change [None]

NARRATIVE: CASE EVENT DATE: 20221231
